FAERS Safety Report 19432964 (Version 1)
Quarter: 2021Q2

REPORT INFORMATION
  Report Type: Spontaneous
  Country: US (occurrence: US)
  Receive Date: 20210618
  Receipt Date: 20210618
  Transmission Date: 20210717
  Serious: Yes (Other)
  Sender: FDA-Public Use
  Company Number: US-AMGEN-USASP2021090510

PATIENT
  Sex: Female

DRUGS (1)
  1. PROLIA [Suspect]
     Active Substance: DENOSUMAB
     Indication: OSTEOPOROSIS POSTMENOPAUSAL
     Dosage: UNK
     Route: 065
     Dates: start: 20210402

REACTIONS (10)
  - Pelvic fracture [Recovering/Resolving]
  - Oral pain [Unknown]
  - Bruxism [Unknown]
  - Tooth fracture [Unknown]
  - Weight decreased [Unknown]
  - Hand fracture [Recovering/Resolving]
  - Fall [Unknown]
  - Foot fracture [Recovering/Resolving]
  - Muscle atrophy [Unknown]
  - Wrong product administered [Unknown]

NARRATIVE: CASE EVENT DATE: 20210402
